FAERS Safety Report 10555216 (Version 1)
Quarter: 2014Q4

REPORT INFORMATION
  Report Type: Spontaneous
  Country: IT (occurrence: IT)
  Receive Date: 20141030
  Receipt Date: 20141030
  Transmission Date: 20150529
  Serious: Yes (Other)
  Sender: FDA-Public Use
  Company Number: IT-SA-2014SA144453

PATIENT
  Age: 71 Year
  Sex: Male

DRUGS (4)
  1. BLOPRESS [Suspect]
     Active Substance: CANDESARTAN CILEXETIL
     Indication: HYPERTENSION
     Route: 048
     Dates: start: 2010
  2. AMARYL [Suspect]
     Active Substance: GLIMEPIRIDE
     Indication: TYPE 2 DIABETES MELLITUS
     Route: 048
     Dates: start: 2008
  3. VEMURAFENIB [Concomitant]
     Active Substance: VEMURAFENIB
     Route: 048
     Dates: start: 20131223, end: 20140616
  4. BLINDED THERAPY [Suspect]
     Active Substance: INVESTIGATIONAL PRODUCT
     Indication: METASTATIC MALIGNANT MELANOMA
     Route: 048
     Dates: start: 20131223, end: 20140609

REACTIONS (6)
  - Papilloedema [Recovered/Resolved]
  - Eye pruritus [Recovered/Resolved]
  - Hemianopia [Recovered/Resolved]
  - Lacrimation increased [Recovered/Resolved]
  - Vision blurred [Recovered/Resolved]
  - Retinal ischaemia [Recovered/Resolved]

NARRATIVE: CASE EVENT DATE: 20140615
